FAERS Safety Report 12861217 (Version 1)
Quarter: 2016Q4

REPORT INFORMATION
  Report Type: Report from Study
  Country: US (occurrence: US)
  Receive Date: 20161019
  Receipt Date: 20161019
  Transmission Date: 20170207
  Serious: Yes (Other)
  Sender: FDA-Public Use
  Company Number: US-AMGEN-USASL2016142474

PATIENT
  Age: 45 Year
  Sex: Female

DRUGS (2)
  1. ENBREL [Suspect]
     Active Substance: ETANERCEPT
     Indication: PSORIASIS
     Dosage: 50 MG, 2 TIMES/WK
     Route: 065
  2. ENBREL [Suspect]
     Active Substance: ETANERCEPT
     Indication: PSORIATIC ARTHROPATHY

REACTIONS (7)
  - Drug effect decreased [Unknown]
  - Respiratory tract congestion [Unknown]
  - Head discomfort [Unknown]
  - Psoriatic arthropathy [Not Recovered/Not Resolved]
  - Skin ulcer [Not Recovered/Not Resolved]
  - Dysphonia [Unknown]
  - Fatigue [Unknown]

NARRATIVE: CASE EVENT DATE: 20161013
